FAERS Safety Report 22247523 (Version 2)
Quarter: 2023Q4

REPORT INFORMATION
  Report Type: Report from Study
  Country: US (occurrence: US)
  Receive Date: 20230425
  Receipt Date: 20231003
  Transmission Date: 20240109
  Serious: Yes (Other)
  Sender: FDA-Public Use
  Company Number: US-ABBVIE-4739435

PATIENT
  Sex: Female

DRUGS (4)
  1. SKYRIZI [Suspect]
     Active Substance: RISANKIZUMAB-RZAA
     Indication: Psoriasis
     Route: 058
  2. SKYRIZI [Suspect]
     Active Substance: RISANKIZUMAB-RZAA
     Route: 058
  3. OTEZLA [Suspect]
     Active Substance: APREMILAST
     Indication: Product used for unknown indication
     Route: 065
  4. TIRZEPATIDE [Suspect]
     Active Substance: TIRZEPATIDE
     Indication: Product used for unknown indication
     Dosage: BRAND NAME: MOUNJARO
     Route: 065

REACTIONS (12)
  - Benign bone neoplasm [Unknown]
  - Psoriasis [Unknown]
  - Abdominal discomfort [Unknown]
  - Psoriatic arthropathy [Unknown]
  - Intervertebral disc disorder [Unknown]
  - Overweight [Unknown]
  - Cataract [Unknown]
  - Therapeutic response shortened [Unknown]
  - Neuropathy peripheral [Unknown]
  - Rheumatoid arthritis [Unknown]
  - Joint range of motion decreased [Unknown]
  - Drug interaction [Unknown]
